FAERS Safety Report 13829973 (Version 1)
Quarter: 2017Q3

REPORT INFORMATION
  Report Type: Spontaneous
  Country: QA (occurrence: QA)
  Receive Date: 20170803
  Receipt Date: 20170803
  Transmission Date: 20171127
  Serious: Yes (Hospitalization, Other)
  Sender: FDA-Public Use
  Company Number: QA-ASTELLAS-2017US030297

PATIENT
  Age: 55 Year
  Sex: Male

DRUGS (9)
  1. TACROLIMUS. [Suspect]
     Active Substance: TACROLIMUS
     Indication: LIVER TRANSPLANT
     Dosage: UNK UNK, UNKNOWN FREQ.
     Route: 065
  2. PREDNISOLONE. [Suspect]
     Active Substance: PREDNISOLONE
     Indication: PORTAL VEIN THROMBOSIS
  3. PREDNISONE. [Suspect]
     Active Substance: PREDNISONE
     Indication: LIVER TRANSPLANT
     Route: 065
     Dates: start: 2007
  4. METHYLPREDNISOLONE. [Suspect]
     Active Substance: METHYLPREDNISOLONE
     Indication: PORTAL VEIN THROMBOSIS
     Route: 065
     Dates: start: 2007
  5. METHYLPREDNISOLONE. [Suspect]
     Active Substance: METHYLPREDNISOLONE
     Indication: PNEUMOCYSTIS JIROVECII INFECTION
  6. PREDNISOLONE. [Suspect]
     Active Substance: PREDNISOLONE
     Indication: ORGANISING PNEUMONIA
  7. METHYLPREDNISOLONE. [Suspect]
     Active Substance: METHYLPREDNISOLONE
     Indication: ORGANISING PNEUMONIA
  8. PREDNISOLONE. [Suspect]
     Active Substance: PREDNISOLONE
     Indication: PNEUMOCYSTIS JIROVECII INFECTION
     Route: 048
     Dates: start: 2007
  9. MYCOPHENOLATE MOFETIL. [Suspect]
     Active Substance: MYCOPHENOLATE MOFETIL
     Indication: LIVER TRANSPLANT
     Dosage: UNK, UNKNOWN FREQ.
     Route: 065
     Dates: start: 200710

REACTIONS (9)
  - Organising pneumonia [Unknown]
  - Mucormycosis [Recovering/Resolving]
  - Pain in extremity [Unknown]
  - Portal vein thrombosis [Unknown]
  - Diarrhoea [Unknown]
  - Escherichia infection [Recovered/Resolved]
  - Pseudomonas infection [Recovered/Resolved]
  - Pneumocystis jirovecii infection [Unknown]
  - Thoracotomy [Unknown]

NARRATIVE: CASE EVENT DATE: 2007
